FAERS Safety Report 19257978 (Version 1)
Quarter: 2021Q2

REPORT INFORMATION
  Report Type: Spontaneous
  Country: US (occurrence: US)
  Receive Date: 20210514
  Receipt Date: 20210514
  Transmission Date: 20210717
  Serious: No
  Sender: FDA-Public Use
  Company Number: None

PATIENT
  Age: 41 Year
  Sex: Female

DRUGS (1)
  1. ZAFEMY [Suspect]
     Active Substance: ETHINYL ESTRADIOL\NORELGESTROMIN
     Indication: CONTRACEPTION
     Dosage: ?          QUANTITY:1 PATCH(ES);OTHER FREQUENCY:ONCE A WEEK;?
     Route: 062
     Dates: start: 20210511

REACTIONS (2)
  - Product adhesion issue [None]
  - Incorrect dose administered [None]

NARRATIVE: CASE EVENT DATE: 20210513
